FAERS Safety Report 8302488-2 (Version None)
Quarter: 2012Q2

REPORT INFORMATION
  Report Type: 
  Country: None (occurrence: None)
  Receive Date: 20120418
  Receipt Date: 20120409
  Transmission Date: 20120825
  Serious: Yes (Hospitalization, Other)
  Sender: FDA-Public Use
  Company Number: US-ELI_LILLY_AND_COMPANY-US201203001822

PATIENT
  Sex: Female
  Weight: 125.17 kg

DRUGS (5)
  1. HUMULIN N [Suspect]
     Dosage: 34 U, EACH EVENING
     Route: 058
     Dates: start: 20120201, end: 20120320
  2. HUMULIN N [Suspect]
     Indication: GESTATIONAL DIABETES
     Dosage: 10 U, EACH MORNING
     Route: 058
     Dates: start: 20120201, end: 20120320
  3. HUMALOG [Suspect]
     Dosage: 6 U, TID
  4. HUMALOG [Suspect]
     Indication: GESTATIONAL DIABETES
     Dosage: 12 U, TID
  5. PRENATAL VITAMINS                  /01549301/ [Concomitant]
     Dosage: UNK

REACTIONS (6)
  - INJECTION SITE HAEMATOMA [None]
  - ABORTION MISSED [None]
  - INJECTION SITE PAIN [None]
  - UNDERDOSE [None]
  - BLOOD GLUCOSE INCREASED [None]
  - MATERNAL EXPOSURE DURING PREGNANCY [None]
